FAERS Safety Report 9774450 (Version 1)
Quarter: 2013Q4

REPORT INFORMATION
  Report Type: Spontaneous
  Country: US (occurrence: None)
  Receive Date: 20131219
  Receipt Date: 20131219
  Transmission Date: 20140711
  Serious: Yes (Other)
  Sender: FDA-Public Use
  Company Number: None

PATIENT
  Sex: 0

DRUGS (1)
  1. PREDNISONE [Suspect]

REACTIONS (6)
  - Product quality issue [None]
  - Fall [None]
  - Loss of control of legs [None]
  - Back pain [None]
  - Immobile [None]
  - Drug ineffective [None]
